FAERS Safety Report 5533853-4 (Version None)
Quarter: 2007Q4

REPORT INFORMATION
  Report Type: 
  Country: None (occurrence: None)
  Receive Date: 20071204
  Receipt Date: 20071130
  Transmission Date: 20080405
  Serious: Yes (Hospitalization, Disabling)
  Sender: FDA-Public Use
  Company Number: US-MERCK-0710USA03058

PATIENT
  Age: 73 Year
  Sex: Female

DRUGS (1)
  1. FOSAMAX [Suspect]
     Indication: OSTEOPENIA
     Route: 048
     Dates: start: 20010501, end: 20070301

REACTIONS (11)
  - ANXIETY [None]
  - CHEST PAIN [None]
  - DENTAL CARIES [None]
  - DEPRESSION [None]
  - FEAR [None]
  - IMPAIRED HEALING [None]
  - INFECTION [None]
  - INSOMNIA [None]
  - OSTEONECROSIS [None]
  - SKELETAL INJURY [None]
  - STRESS [None]
